FAERS Safety Report 9105181 (Version 1)
Quarter: 2013Q1

REPORT INFORMATION
  Report Type: Spontaneous
  Country: US (occurrence: US)
  Receive Date: 20130220
  Receipt Date: 20130220
  Transmission Date: 20140127
  Serious: Yes (Other)
  Sender: FDA-Public Use
  Company Number: US-BAYER-2013-021708

PATIENT
  Age: 80 Year
  Sex: Female

DRUGS (5)
  1. PHILLIPS^ COLON HEALTH [Suspect]
     Indication: CONSTIPATION
     Dosage: 1 DF, QD
     Route: 048
     Dates: start: 201209
  2. ALEVE CAPLET/TABLET,MIDOL EXTENDED RELIEF CAPLET [Suspect]
     Indication: ANALGESIC THERAPY
     Dosage: 1 DF, QD
     Route: 048
     Dates: start: 20130210, end: 20130211
  3. NEXIUM [Concomitant]
  4. DIAZEPAM [Concomitant]
  5. TRAMADOL [Concomitant]

REACTIONS (4)
  - Blood pressure increased [Recovered/Resolved]
  - Hot flush [Recovered/Resolved]
  - Heart rate increased [None]
  - Bronchitis [None]
